FAERS Safety Report 8234037-1 (Version None)
Quarter: 2012Q1

REPORT INFORMATION
  Report Type: 
  Country: None (occurrence: None)
  Receive Date: 20120326
  Receipt Date: 20120326
  Transmission Date: 20120608
  Serious: Yes (Other)
  Sender: FDA-Public Use
  Company Number: None

PATIENT
  Sex: Female
  Weight: 68.038 kg

DRUGS (2)
  1. LETROZOLE [Suspect]
  2. LETROZOLE [Suspect]

REACTIONS (3)
  - DENTAL CARIES [None]
  - TOOTH LOSS [None]
  - TOOTH DISORDER [None]
